FAERS Safety Report 6203231-3 (Version None)
Quarter: 2009Q2

REPORT INFORMATION
  Report Type: 
  Country: None (occurrence: None)
  Receive Date: 20090527
  Receipt Date: 20090522
  Transmission Date: 20091009
  Serious: Yes (Death, Other)
  Sender: FDA-Public Use
  Company Number: NL-ROCHE-634458

PATIENT
  Sex: Male

DRUGS (6)
  1. CAPECITABINE [Suspect]
     Indication: COLORECTAL CANCER
     Dosage: DATE OF LAST CYCLE: 11/DEC/2007
     Route: 048
     Dates: start: 20060808
  2. BEVACIZUMAB [Suspect]
     Indication: COLORECTAL CANCER
     Dosage: DATE OF LAST CYCLE: 11/DEC/2007
     Route: 042
     Dates: start: 20060808
  3. OXALIPLATIN [Suspect]
     Indication: COLORECTAL CANCER
     Dosage: DATE OF LAST DOSE: 21/DEC/2006
     Route: 042
     Dates: start: 20060808
  4. CETUXIMAB [Suspect]
     Indication: COLORECTAL CANCER
     Route: 042
  5. AMLODIPINE [Concomitant]
  6. PYRIDOXINE [Concomitant]

REACTIONS (2)
  - ILEUS [None]
  - MUSCULOSKELETAL PAIN [None]
